FAERS Safety Report 12998145 (Version 1)
Quarter: 2016Q4

REPORT INFORMATION
  Report Type: Spontaneous
  Country: US (occurrence: US)
  Receive Date: 20161205
  Receipt Date: 20161205
  Transmission Date: 20170207
  Serious: No
  Sender: FDA-Public Use
  Company Number: US-PFIZER INC-2016554231

PATIENT
  Age: 90 Year
  Sex: Female
  Weight: 52 kg

DRUGS (1)
  1. PREMARIN [Suspect]
     Active Substance: ESTROGENS, CONJUGATED
     Indication: RASH
     Dosage: UNK

REACTIONS (2)
  - Product use issue [Unknown]
  - Drug hypersensitivity [Unknown]
